FAERS Safety Report 18948471 (Version 1)
Quarter: 2021Q1

REPORT INFORMATION
  Report Type: Spontaneous
  Country: GB (occurrence: GB)
  Receive Date: 20210227
  Receipt Date: 20210227
  Transmission Date: 20210420
  Serious: Yes (Other)
  Sender: FDA-Public Use
  Company Number: GB-ACCORD-218283

PATIENT
  Age: 64 Year
  Sex: Female
  Weight: 73 kg

DRUGS (6)
  1. PRALUENT [Concomitant]
     Active Substance: ALIROCUMAB
  2. LOSARTAN. [Concomitant]
     Active Substance: LOSARTAN
  3. OVESTIN [Concomitant]
     Active Substance: ESTRIOL
  4. SERTRALINE [Suspect]
     Active Substance: SERTRALINE HYDROCHLORIDE
     Indication: ANXIETY
     Route: 048
     Dates: start: 20201113, end: 20210103
  5. BENDROFLUMETHIAZIDE [Concomitant]
     Active Substance: BENDROFLUMETHIAZIDE
  6. HYDROCORTISONE. [Concomitant]
     Active Substance: HYDROCORTISONE

REACTIONS (7)
  - Neuralgia [Recovered/Resolved]
  - Hypoaesthesia [Recovered/Resolved with Sequelae]
  - Erythema multiforme [Recovering/Resolving]
  - Urticaria [Recovered/Resolved]
  - Rash macular [Unknown]
  - Burning sensation [Unknown]
  - Vasculitis [Recovered/Resolved with Sequelae]

NARRATIVE: CASE EVENT DATE: 20201120
